FAERS Safety Report 10205639 (Version 1)
Quarter: 2014Q2

REPORT INFORMATION
  Report Type: Spontaneous
  Country: US (occurrence: US)
  Receive Date: 20140529
  Receipt Date: 20140529
  Transmission Date: 20141212
  Serious: Yes (Other)
  Sender: FDA-Public Use
  Company Number: US-ELI_LILLY_AND_COMPANY-US201405006962

PATIENT
  Age: 60 Year
  Sex: Male
  Weight: 107.3 kg

DRUGS (1)
  1. INSULIN HUMAN [Suspect]
     Indication: PRODUCT USED FOR UNKNOWN INDICATION
     Route: 058

REACTIONS (5)
  - Neoplasm malignant [Unknown]
  - Brain neoplasm [Unknown]
  - Blood glucose increased [Recovered/Resolved]
  - Thirst [Unknown]
  - Infusion site induration [Unknown]
